FAERS Safety Report 21721210 (Version 4)
Quarter: 2023Q4

REPORT INFORMATION
  Report Type: Spontaneous
  Country: US (occurrence: US)
  Receive Date: 20221213
  Receipt Date: 20231010
  Transmission Date: 20240110
  Serious: No
  Sender: FDA-Public Use
  Company Number: US-SA-SAC20221209000706

PATIENT
  Age: 57 Year
  Sex: Male
  Weight: 58.9 kg

DRUGS (10)
  1. DUPIXENT [Suspect]
     Active Substance: DUPILUMAB
     Indication: Dermatitis atopic
     Dosage: 600 MG, 1X
     Route: 058
     Dates: start: 20221125, end: 20221125
  2. DUPIXENT [Suspect]
     Active Substance: DUPILUMAB
     Dosage: 300 MG, QOW
     Route: 058
     Dates: start: 202212
  3. TRIAMCINOLONE ACETONIDE [Concomitant]
     Active Substance: TRIAMCINOLONE ACETONIDE
  4. AMLODIPINE\OLMESARTAN [Concomitant]
     Active Substance: AMLODIPINE\OLMESARTAN
  5. ALBUTEROL SULFATE [Concomitant]
     Active Substance: ALBUTEROL SULFATE
  6. CEPHALEXIN [Concomitant]
     Active Substance: CEPHALEXIN
  7. MUPIROCIN [Concomitant]
     Active Substance: MUPIROCIN
  8. IBUPROFEN [Concomitant]
     Active Substance: IBUPROFEN
  9. MONTELUKAST SODIUM [Concomitant]
     Active Substance: MONTELUKAST SODIUM
  10. AZITHROMYCIN [Concomitant]
     Active Substance: AZITHROMYCIN

REACTIONS (2)
  - Eczema [Not Recovered/Not Resolved]
  - Therapeutic response decreased [Not Recovered/Not Resolved]
